FAERS Safety Report 20320509 (Version 1)
Quarter: 2022Q1

REPORT INFORMATION
  Report Type: Spontaneous
  Country: US (occurrence: US)
  Receive Date: 20220111
  Receipt Date: 20220111
  Transmission Date: 20220424
  Serious: No
  Sender: FDA-Public Use
  Company Number: US-GLENMARK PHARMACEUTICALS-2021GMK054310

PATIENT

DRUGS (2)
  1. TOPIRAMATE [Suspect]
     Active Substance: TOPIRAMATE
     Indication: Pruritus
     Dosage: 25 MILLIGRAM, AM (1 TABLET ONCE A DAY IN THE MORNING FOR 2 WEEKS)
     Route: 048
     Dates: start: 20210520
  2. TOPIRAMATE [Suspect]
     Active Substance: TOPIRAMATE
     Dosage: 25 MILLIGRAM, BID
     Route: 048
     Dates: start: 20210520

REACTIONS (3)
  - Product use in unapproved indication [Unknown]
  - Dysgeusia [Not Recovered/Not Resolved]
  - Product taste abnormal [Unknown]

NARRATIVE: CASE EVENT DATE: 20210101
